FAERS Safety Report 6173097-9 (Version None)
Quarter: 2009Q2

REPORT INFORMATION
  Report Type: 
  Country: None (occurrence: None)
  Receive Date: 20090430
  Receipt Date: 20090422
  Transmission Date: 20091009
  Serious: Yes (Other)
  Sender: FDA-Public Use
  Company Number: US-ROCHE-623586

PATIENT
  Sex: Female
  Weight: 64 kg

DRUGS (1)
  1. BONIVA [Suspect]
     Indication: OSTEOPOROSIS
     Route: 048
     Dates: start: 20061031, end: 20080601

REACTIONS (12)
  - ANXIETY DISORDER [None]
  - ARTERIOSCLEROSIS CORONARY ARTERY [None]
  - CHRONIC OBSTRUCTIVE PULMONARY DISEASE [None]
  - DECREASED APPETITE [None]
  - DEPRESSION [None]
  - ESSENTIAL HYPERTENSION [None]
  - INSOMNIA [None]
  - MIXED HYPERLIPIDAEMIA [None]
  - RHINITIS ALLERGIC [None]
  - SPINAL FRACTURE [None]
  - UTERINE CANCER [None]
  - VITAMIN D DEFICIENCY [None]
